FAERS Safety Report 9276729 (Version 1)
Quarter: 2013Q2

REPORT INFORMATION
  Report Type: Spontaneous
  Country: DE (occurrence: DE)
  Receive Date: 20130507
  Receipt Date: 20130507
  Transmission Date: 20140414
  Serious: No
  Sender: FDA-Public Use
  Company Number: DE-ELI_LILLY_AND_COMPANY-DE201304008738

PATIENT
  Age: 72 Year
  Sex: Male

DRUGS (3)
  1. CIALIS [Suspect]
     Indication: ERECTILE DYSFUNCTION
     Dosage: 5 MG, PRN
     Route: 048
     Dates: start: 2003
  2. VIAGRA [Concomitant]
  3. LAIF [Concomitant]

REACTIONS (2)
  - Visual acuity reduced [Not Recovered/Not Resolved]
  - Chest discomfort [Not Recovered/Not Resolved]
